FAERS Safety Report 7079044-X (Version None)
Quarter: 2010Q4

REPORT INFORMATION
  Report Type: 
  Country: None (occurrence: None)
  Receive Date: 20101102
  Receipt Date: 20101025
  Transmission Date: 20110411
  Serious: Yes (Death)
  Sender: FDA-Public Use
  Company Number: US-GILEAD-2010-0032924

PATIENT
  Sex: Female
  Weight: 84.898 kg

DRUGS (22)
  1. LETAIRIS [Suspect]
     Indication: PULMONARY ARTERIAL HYPERTENSION
     Route: 048
     Dates: start: 20091209
  2. MAGNESIUM SULFATE [Concomitant]
  3. ALEVE (CAPLET) [Concomitant]
  4. PULMICORT [Concomitant]
  5. ALBUTEROL [Concomitant]
  6. BROVANA [Concomitant]
  7. FUROSEMIDE [Concomitant]
  8. ALPHAGAN [Concomitant]
  9. ASTELIN [Concomitant]
  10. PREDNISONE [Concomitant]
  11. TRAVATAN [Concomitant]
  12. INDAPAMIDE [Concomitant]
  13. LANTUS [Concomitant]
  14. POTASSIUM CHLORIDE [Concomitant]
  15. SIMVASTATIN [Concomitant]
  16. NOVOLOG [Concomitant]
  17. SULFAMETHOXAZOLE AND TRIMETHOPRIM [Concomitant]
  18. SPIRIVA [Concomitant]
  19. MULTI-VITAMINS [Concomitant]
  20. OMEPRAZOLE [Concomitant]
  21. OYSTER SHELL W/VITAMIN D [Concomitant]
  22. CALCIUM + D [Concomitant]

REACTIONS (1)
  - DEATH [None]
